FAERS Safety Report 16527103 (Version 4)
Quarter: 2020Q2

REPORT INFORMATION
  Report Type: Report from Study
  Country: US (occurrence: US)
  Receive Date: 20190703
  Receipt Date: 20200507
  Transmission Date: 20200713
  Serious: Yes (Death, Hospitalization, Congenital Anomaly)
  Sender: FDA-Public Use
  Company Number: US-ACTELION-A-NJ2019-192445

PATIENT
  Age: 70 Year
  Sex: Male
  Weight: 81.63 kg

DRUGS (4)
  1. OPSUMIT [Suspect]
     Active Substance: MACITENTAN
     Indication: PULMONARY ARTERIAL HYPERTENSION
     Dosage: 10 MG, QD
     Route: 048
     Dates: start: 20190110
  2. SILDENAFIL CITRATE. [Concomitant]
     Active Substance: SILDENAFIL CITRATE
  3. ELIQUIS [Concomitant]
     Active Substance: APIXABAN
  4. TADALAFIL. [Concomitant]
     Active Substance: TADALAFIL

REACTIONS (14)
  - Renal disorder [Unknown]
  - Oedema peripheral [Recovered/Resolved]
  - Dyspnoea [Recovered/Resolved]
  - Sepsis [Recovered/Resolved]
  - Hypokalaemia [Recovered/Resolved]
  - Hypovolaemia [Recovered/Resolved]
  - Death [Fatal]
  - Cardiac failure congestive [Recovered/Resolved]
  - Fatigue [Recovered/Resolved]
  - Iron deficiency anaemia [Recovered/Resolved]
  - Troponin increased [Recovered/Resolved]
  - Hypotension [Recovered/Resolved]
  - Fluid retention [Unknown]
  - Asthenia [Recovered/Resolved]

NARRATIVE: CASE EVENT DATE: 20190603
